FAERS Safety Report 26026871 (Version 1)
Quarter: 2025Q4

REPORT INFORMATION
  Report Type: Spontaneous
  Country: US (occurrence: US)
  Receive Date: 20251111
  Receipt Date: 20251111
  Transmission Date: 20260118
  Serious: No
  Sender: BAYER HEALTHCARE PHARMACEUTICALS INC.
  Company Number: US-BAYER-2025A149023

PATIENT
  Age: 65 Year
  Sex: Female

DRUGS (1)
  1. GADAVIST [Suspect]
     Active Substance: GADOBUTROL
     Indication: Magnetic resonance imaging
     Dosage: 5.5 ML, ONCE
     Route: 042
     Dates: start: 20251110, end: 20251110

REACTIONS (6)
  - Paraesthesia [None]
  - Lip swelling [None]
  - Tachycardia [None]
  - Palpitations [None]
  - Rash [None]
  - Eye movement disorder [None]

NARRATIVE: CASE EVENT DATE: 20251110
